FAERS Safety Report 11559258 (Version 1)
Quarter: 2015Q3

REPORT INFORMATION
  Report Type: Report from Study
  Country: CA (occurrence: CA)
  Receive Date: 20150928
  Receipt Date: 20150928
  Transmission Date: 20151125
  Serious: Yes (Other)
  Sender: FDA-Public Use
  Company Number: PHHY2014CA050485

PATIENT
  Sex: Male

DRUGS (9)
  1. EXJADE [Suspect]
     Active Substance: DEFERASIROX
     Dosage: 1 DF, BID (ONE IN THE MORNING AND ONE IN THE EVENING)
     Route: 048
  2. DIOVAN [Concomitant]
     Active Substance: VALSARTAN
     Indication: PRODUCT USED FOR UNKNOWN INDICATION
     Route: 065
  3. GLUCOSAMINE [Concomitant]
     Active Substance: GLUCOSAMINE
     Indication: PRODUCT USED FOR UNKNOWN INDICATION
     Route: 065
  4. OMEGA 3 [Concomitant]
     Active Substance: OMEGA-3 FATTY ACIDS
     Indication: PRODUCT USED FOR UNKNOWN INDICATION
     Route: 065
  5. EXJADE [Suspect]
     Active Substance: DEFERASIROX
     Dosage: 250 MG, QD
     Route: 048
     Dates: start: 20140514
  6. EXJADE [Suspect]
     Active Substance: DEFERASIROX
     Dosage: 2 DF (250MG), BID (TWO IN THE MORNING AND TWO IN THE EVENING)
     Route: 048
  7. KAYEXALATE [Concomitant]
     Active Substance: SODIUM POLYSTYRENE SULFONATE
     Indication: BLOOD POTASSIUM DECREASED
     Dosage: THREE TIMES WEEKLY
     Route: 065
  8. EXJADE [Suspect]
     Active Substance: DEFERASIROX
     Indication: MYELODYSPLASTIC SYNDROME
     Dosage: 1 DF, BID
     Route: 048
     Dates: start: 20130812, end: 20140408
  9. EXJADE [Suspect]
     Active Substance: DEFERASIROX
     Dosage: 1 DF, BID
     Route: 048

REACTIONS (7)
  - Asthenia [Not Recovered/Not Resolved]
  - Localised infection [Unknown]
  - Dizziness [Not Recovered/Not Resolved]
  - Haemoglobin decreased [Unknown]
  - Decreased immune responsiveness [Unknown]
  - Contusion [Unknown]
  - Serum ferritin abnormal [Unknown]
